FAERS Safety Report 6099064-1 (Version None)
Quarter: 2009Q1

REPORT INFORMATION
  Report Type: 
  Country: None (occurrence: None)
  Receive Date: 20090302
  Receipt Date: 20090219
  Transmission Date: 20090719
  Serious: Yes (Hospitalization)
  Sender: FDA-Public Use
  Company Number: FR-ELI_LILLY_AND_COMPANY-FR200902007014

PATIENT
  Age: 59 Year
  Sex: Male

DRUGS (6)
  1. ZYPREXA [Suspect]
     Indication: MANIA
     Dosage: 10 MG, DAILY (1/D)
  2. ZYPREXA [Suspect]
     Dosage: 20 MG, DAILY (1/D)
     Route: 048
  3. DEPAKOTE [Concomitant]
  4. ATARAX [Concomitant]
  5. RIVOTRIL [Concomitant]
  6. LOXAPAC [Concomitant]
     Dosage: UNK, UNK

REACTIONS (2)
  - ELECTROCARDIOGRAM QT PROLONGED [None]
  - MANIA [None]
